FAERS Safety Report 24286067 (Version 2)
Quarter: 2024Q4

REPORT INFORMATION
  Report Type: Report from Study
  Country: JP (occurrence: JP)
  Receive Date: 20240905
  Receipt Date: 20241107
  Transmission Date: 20250115
  Serious: Yes (Other)
  Sender: INSMED
  Company Number: JP-INSMED, INC.-2024-03438-JP

PATIENT
  Age: 83 Year
  Sex: Female
  Weight: 37 kg

DRUGS (7)
  1. ARIKAYCE [Suspect]
     Active Substance: AMIKACIN
     Indication: Mycobacterium avium complex infection
     Dosage: 590 MILLIGRAM, QD
     Route: 055
     Dates: start: 20230825, end: 20231215
  2. AZITHROMYCIN [Concomitant]
     Active Substance: AZITHROMYCIN
     Indication: Mycobacterium avium complex infection
     Dosage: 250 MILLIGRAM/DAY
     Route: 065
     Dates: start: 20230626
  3. ETHAMBUTOL [Concomitant]
     Active Substance: ETHAMBUTOL HYDROCHLORIDE
     Indication: Mycobacterium avium complex infection
     Dosage: 500 MILLIGRAM/DAY
     Route: 065
     Dates: start: 202105
  4. RIFAMPIN [Concomitant]
     Active Substance: RIFAMPIN
     Indication: Mycobacterium avium complex infection
     Dosage: 300 MILLIGRAM/DAY
     Route: 065
     Dates: start: 202105
  5. SITAFLOXACIN [Concomitant]
     Active Substance: SITAFLOXACIN
     Indication: Mycobacterium avium complex infection
     Dosage: 100 MILLIGRAM/DAY
     Route: 065
     Dates: start: 202105
  6. AMLODIPINE [Concomitant]
     Active Substance: AMLODIPINE BESYLATE
     Indication: Product used for unknown indication
     Dosage: 5 MILLIGRAM, UNK
     Route: 048
  7. LANSOPRAZOLE [Concomitant]
     Active Substance: LANSOPRAZOLE
     Indication: Product used for unknown indication
     Dosage: 15 MILLIGRAM, UNK
     Route: 048

REACTIONS (1)
  - Pulmonary toxicity [Recovered/Resolved]

NARRATIVE: CASE EVENT DATE: 20231215
